FAERS Safety Report 4824108-1 (Version None)
Quarter: 2005Q4

REPORT INFORMATION
  Report Type: 
  Country: None (occurrence: None)
  Receive Date: 20051108
  Receipt Date: 20051025
  Transmission Date: 20060501
  Serious: Yes (Hospitalization)
  Sender: FDA-Public Use
  Company Number: 2005-01802

PATIENT
  Age: 76 Year
  Sex: Female

DRUGS (16)
  1. VELCADE [Suspect]
     Indication: MULTIPLE MYELOMA
     Dosage: SEE IMAGE
     Route: 065
     Dates: start: 20040629, end: 20040702
  2. VELCADE [Suspect]
     Indication: MULTIPLE MYELOMA
     Dosage: SEE IMAGE
     Route: 065
     Dates: start: 20040709, end: 20040730
  3. VELCADE [Suspect]
     Indication: MULTIPLE MYELOMA
     Dosage: SEE IMAGE
     Route: 065
     Dates: start: 20040810, end: 20040810
  4. VELCADE [Suspect]
     Indication: MULTIPLE MYELOMA
     Dosage: SEE IMAGE
     Route: 065
     Dates: start: 20040813, end: 20040817
  5. VELCADE [Suspect]
     Indication: MULTIPLE MYELOMA
     Dosage: SEE IMAGE
     Route: 065
     Dates: start: 20040831, end: 20040907
  6. VELCADE [Suspect]
     Indication: MULTIPLE MYELOMA
     Dosage: SEE IMAGE
     Route: 065
     Dates: start: 20040916, end: 20040916
  7. VELCADE [Suspect]
     Indication: MULTIPLE MYELOMA
     Dosage: SEE IMAGE
     Route: 065
     Dates: start: 20040920, end: 20040923
  8. VELCADE [Suspect]
     Indication: MULTIPLE MYELOMA
     Dosage: SEE IMAGE
     Route: 065
     Dates: start: 20040927, end: 20040927
  9. VELCADE [Suspect]
     Indication: MULTIPLE MYELOMA
     Dosage: SEE IMAGE
     Route: 065
     Dates: start: 20041101, end: 20050505
  10. TYLENOL ARTHRITIS (PARACETAMOL) [Concomitant]
  11. POTASSIUM (POTASSIUM) [Concomitant]
  12. VITAMIN B12 [Concomitant]
  13. HYDROCODONE BITARTRATE [Concomitant]
  14. LASIX [Concomitant]
  15. COZAAR [Concomitant]
  16. COUMADIN [Concomitant]

REACTIONS (5)
  - CELLULITIS [None]
  - CLOSTRIDIUM COLITIS [None]
  - DEHYDRATION [None]
  - IMMUNOSUPPRESSION [None]
  - PLATELET COUNT DECREASED [None]
